FAERS Safety Report 4633057-3 (Version None)
Quarter: 2005Q2

REPORT INFORMATION
  Report Type: 
  Country: None (occurrence: None)
  Receive Date: 20050411
  Receipt Date: 20050411
  Transmission Date: 20051028
  Serious: Yes (Other)
  Sender: FDA-Public Use
  Company Number: None

PATIENT
  Age: 30 Year
  Sex: Female
  Weight: 97.5234 kg

DRUGS (11)
  1. PROGESTERONE IN OIL INJ [Suspect]
     Indication: IN VITRO FERTILISATION
     Dosage: 100MG  ONCE A DAY  INTRAMUSCU
     Route: 030
     Dates: start: 20050329, end: 20050402
  2. PROGESTERONE IN OIL INJ [Suspect]
     Indication: INFERTILITY
     Dosage: 100MG  ONCE A DAY  INTRAMUSCU
     Route: 030
     Dates: start: 20050329, end: 20050402
  3. PROGESTERONE IN OIL INJ [Suspect]
  4. LUPRON [Concomitant]
  5. GONAL-F-FSH [Concomitant]
  6. CHORIONIC GONADOTROPIN [Concomitant]
  7. DOXYCYCLINE [Concomitant]
  8. ASPIRIN [Concomitant]
  9. ESTRADIOL [Concomitant]
  10. MEDROL [Concomitant]
  11. VITAMIN AND MINERAL PRENATAL SUPPLEMENT W/ FOLIC ACID CAP [Concomitant]

REACTIONS (12)
  - BURNING SENSATION [None]
  - CRYING [None]
  - DIFFICULTY IN WALKING [None]
  - ERYTHEMA [None]
  - FEELING HOT [None]
  - FURUNCLE [None]
  - HIP SWELLING [None]
  - INSOMNIA [None]
  - PAIN [None]
  - PHARMACEUTICAL PRODUCT COMPLAINT [None]
  - SKIN DISCOLOURATION [None]
  - SWELLING [None]
